FAERS Safety Report 5261250-8 (Version None)
Quarter: 2007Q1

REPORT INFORMATION
  Report Type: 
  Country: None (occurrence: None)
  Receive Date: 20070309
  Receipt Date: 20070302
  Transmission Date: 20070707
  Serious: Yes (Death, Life-Threatening)
  Sender: FDA-Public Use
  Company Number: JP-MERCK-0702USA04250

PATIENT
  Age: 85 Year
  Sex: Female

DRUGS (7)
  1. PRIMAXIN [Suspect]
     Indication: INTERSTITIAL LUNG DISEASE
     Route: 042
     Dates: start: 20070213, end: 20070219
  2. VFEND [Suspect]
     Indication: ASPERGILLOSIS
     Route: 042
     Dates: start: 20070213, end: 20070219
  3. OMEPRAZOLE [Concomitant]
     Indication: GASTRITIS
     Route: 048
     Dates: start: 20070208, end: 20070222
  4. HALOPERIDOL [Concomitant]
     Indication: SCHIZOPHRENIA
     Route: 042
     Dates: start: 20070208, end: 20070222
  5. PREDONINE [Concomitant]
     Indication: INTERSTITIAL LUNG DISEASE
     Route: 042
     Dates: start: 20070209, end: 20070222
  6. METHYLPREDNISOLONE SODIUM SUCCINATE [Concomitant]
     Indication: INTERSTITIAL LUNG DISEASE
     Route: 042
     Dates: start: 20070206, end: 20070208
  7. VITAMEDIN [Concomitant]
     Indication: VITAMIN SUPPLEMENTATION
     Route: 042
     Dates: start: 20070209, end: 20070222

REACTIONS (2)
  - INTERSTITIAL LUNG DISEASE [None]
  - THROMBOCYTOPENIA [None]
